FAERS Safety Report 4766239-0 (Version None)
Quarter: 2005Q3

REPORT INFORMATION
  Report Type: 
  Country: None (occurrence: None)
  Receive Date: 20050912
  Receipt Date: 20050607
  Transmission Date: 20060218
  Serious: Yes (Death)
  Sender: FDA-Public Use
  Company Number: US-MERCK-0506USA01436

PATIENT
  Age: 62 Year
  Sex: Male
  Weight: 159 kg

DRUGS (14)
  1. VIOXX [Suspect]
     Indication: MONARTHRITIS
     Route: 048
     Dates: start: 20030217, end: 20030815
  2. BEXTRA [Concomitant]
     Route: 065
  3. DEMADEX [Concomitant]
     Route: 065
     Dates: start: 20010401, end: 20030815
  4. FAMOTIDINE [Concomitant]
     Route: 065
     Dates: start: 20010601
  5. HUMULIN 70/30 [Concomitant]
     Route: 065
     Dates: start: 20010727
  6. ACETAMINOPHEN AND HYDROCODONE BITARTRATE [Concomitant]
     Route: 065
     Dates: start: 19990601
  7. NASACORT AQ [Concomitant]
     Route: 065
     Dates: start: 20030401
  8. NEURONTIN [Concomitant]
     Route: 065
     Dates: start: 20030401
  9. [THERAPY UNSPECIFIED] [Concomitant]
     Route: 065
     Dates: start: 20011201
  10. OMEPRAZOLE [Concomitant]
     Route: 065
     Dates: start: 20021001
  11. SPIRONOLACTONE [Concomitant]
     Route: 065
     Dates: start: 20010401
  12. SULFADIMETHOXINE AND TRIMETHOPRIM [Concomitant]
     Route: 065
     Dates: start: 20020829
  13. TORSEMIDE [Concomitant]
     Route: 065
     Dates: start: 20020801
  14. TRIAZOLAM [Concomitant]
     Route: 065
     Dates: start: 20010201

REACTIONS (5)
  - ACUTE MYOCARDIAL INFARCTION [None]
  - CARDIAC ARREST [None]
  - COUGH [None]
  - OEDEMA PERIPHERAL [None]
  - RENAL FAILURE [None]
